FAERS Safety Report 9012095 (Version 2)
Quarter: 2013Q1

REPORT INFORMATION
  Report Type: Spontaneous
  Country: US (occurrence: None)
  Receive Date: 20121228
  Receipt Date: 20130129
  Transmission Date: 20140127
  Serious: Yes (Other)
  Sender: FDA-Public Use
  Company Number: 2012P1067820

PATIENT
  Age: 59 Year
  Sex: Female

DRUGS (2)
  1. INFUMORPH [Suspect]
     Indication: CANCER PAIN
     Route: 037
     Dates: start: 20121120
  2. BUPIVACAINE [Suspect]

REACTIONS (2)
  - Post lumbar puncture syndrome [None]
  - Cerebrospinal fluid leakage [None]
